FAERS Safety Report 18709939 (Version 1)
Quarter: 2021Q1

REPORT INFORMATION
  Report Type: Spontaneous
  Country: US (occurrence: US)
  Receive Date: 20210106
  Receipt Date: 20210106
  Transmission Date: 20210419
  Serious: Yes (Other)
  Sender: FDA-Public Use
  Company Number: US-BEH-2021126942

PATIENT
  Sex: Female

DRUGS (3)
  1. KALBITOR [Concomitant]
     Active Substance: ECALLANTIDE
     Dosage: 10 MG/ML
     Route: 065
  2. HAEGARDA [Suspect]
     Active Substance: HUMAN C1-ESTERASE INHIBITOR
     Indication: HEREDITARY ANGIOEDEMA
     Dosage: 4000 INTERNATIONAL UNIT, BIW
     Route: 058
  3. HAEGARDA [Suspect]
     Active Substance: HUMAN C1-ESTERASE INHIBITOR
     Dosage: UNK
     Route: 058

REACTIONS (3)
  - Hereditary angioedema [Recovered/Resolved]
  - Product dose omission issue [Unknown]
  - No adverse event [Unknown]
